FAERS Safety Report 5087311-4 (Version None)
Quarter: 2006Q3

REPORT INFORMATION
  Report Type: 
  Country: None (occurrence: None)
  Receive Date: 20060824
  Receipt Date: 20060811
  Transmission Date: 20061208
  Serious: Yes (Other)
  Sender: FDA-Public Use
  Company Number: PHFR2006GB02515

PATIENT
  Age: 62 Year
  Sex: Male
  Weight: 92 kg

DRUGS (1)
  1. TERBINAFINE [Suspect]
     Indication: ONYCHOMYCOSIS
     Dosage: 250MG DAILY
     Route: 048
     Dates: start: 20060511, end: 20060612

REACTIONS (4)
  - DEPRESSED MOOD [None]
  - DISSOCIATION [None]
  - HYPERHIDROSIS [None]
  - TEARFULNESS [None]
